FAERS Safety Report 8513638-7 (Version None)
Quarter: 2012Q3

REPORT INFORMATION
  Report Type: 
  Country: None (occurrence: None)
  Receive Date: 20120717
  Receipt Date: 20120711
  Transmission Date: 20120928
  Serious: No
  Sender: FDA-Public Use
  Company Number: US-PFIZER INC-2012153387

PATIENT
  Sex: Female

DRUGS (4)
  1. ERYTHROMYCIN [Suspect]
     Dosage: UNK
  2. BACTRIM [Suspect]
     Dosage: UNK
  3. SOLU-MEDROL [Suspect]
     Dosage: UNK
  4. FLAGYL [Suspect]
     Dosage: UNK

REACTIONS (1)
  - DRUG HYPERSENSITIVITY [None]
